FAERS Safety Report 6865733-6 (Version None)
Quarter: 2010Q3

REPORT INFORMATION
  Report Type: 
  Country: None (occurrence: None)
  Receive Date: 20100721
  Receipt Date: 20080614
  Transmission Date: 20110219
  Serious: No
  Sender: FDA-Public Use
  Company Number: US-PFIZER INC-2008038298

PATIENT
  Sex: Female
  Weight: 44.5 kg

DRUGS (5)
  1. CHANTIX [Suspect]
     Indication: SMOKING CESSATION THERAPY
     Route: 048
     Dates: start: 20080424
  2. NORCO [Concomitant]
     Indication: BACK PAIN
  3. DIAZEPAM [Concomitant]
     Indication: MUSCLE SPASMS
  4. DIAZEPAM [Concomitant]
     Indication: ANXIETY
  5. PANTOPRAZOLE [Concomitant]
     Indication: GASTROOESOPHAGEAL REFLUX DISEASE

REACTIONS (6)
  - ABDOMINAL PAIN UPPER [None]
  - DRUG INEFFECTIVE [None]
  - DYSGEUSIA [None]
  - DYSPHAGIA [None]
  - MALAISE [None]
  - VIRAL INFECTION [None]
